FAERS Safety Report 4562870-6 (Version None)
Quarter: 2005Q1

REPORT INFORMATION
  Report Type: 
  Country: None (occurrence: None)
  Receive Date: 20050121
  Receipt Date: 20050111
  Transmission Date: 20050727
  Serious: Yes (Hospitalization)
  Sender: FDA-Public Use
  Company Number: 2005009205

PATIENT
  Age: 94 Year
  Sex: Female

DRUGS (11)
  1. VERADAY TABLET (VERAPAMIL HYDROCHLORIDE) [Suspect]
     Indication: ILL-DEFINED DISORDER
     Dosage: 240 MG (UNK, UNKNOWN), ORAL
     Route: 048
     Dates: start: 20040818, end: 20040818
  2. DONEPEZIL HCL [Suspect]
     Indication: ILL-DEFINED DISORDER
     Dosage: (5 MG, 1 IN 1 D) (UNK UNKNOWN), ORAL
     Route: 048
     Dates: start: 20040818, end: 20040818
  3. ENALAPRIL MALEATE [Suspect]
     Indication: ILL-DEFINED DISORDER
     Dosage: 10 MG (UNK, UNKNOWN), ORAL
     Route: 048
     Dates: start: 20040818, end: 20040818
  4. DIGOXIN [Concomitant]
  5. FUROSEMIDE [Concomitant]
  6. ALDACTAZINE (ALTIZIDE, SPIRONOLACTONE) [Concomitant]
  7. CAPTOPRIL [Concomitant]
  8. MOLSIDOMINE [Concomitant]
  9. HYDROXYZINE HYDROCHLORIDE [Concomitant]
  10. OMEPRAZOLE [Concomitant]
  11. ZOLPIDEM TARTRATE [Concomitant]

REACTIONS (13)
  - ATRIOVENTRICULAR BLOCK SECOND DEGREE [None]
  - CARDIAC DISORDER [None]
  - CARDIOMEGALY [None]
  - ELECTROCARDIOGRAM PR PROLONGATION [None]
  - HYPONATRAEMIA [None]
  - HYPOTENSION [None]
  - MALAISE [None]
  - MEDICATION ERROR [None]
  - MITRAL VALVE INCOMPETENCE [None]
  - PULMONARY HYPERTENSION [None]
  - RENAL FAILURE [None]
  - SYNCOPE [None]
  - TRICUSPID VALVE INCOMPETENCE [None]
